FAERS Safety Report 6629607-8 (Version None)
Quarter: 2010Q1

REPORT INFORMATION
  Report Type: 
  Country: None (occurrence: None)
  Receive Date: 20100311
  Receipt Date: 20100226
  Transmission Date: 20100710
  Serious: Yes (Other)
  Sender: FDA-Public Use
  Company Number: US-ELI_LILLY_AND_COMPANY-US201001004845

PATIENT
  Sex: Female

DRUGS (3)
  1. FORTEO [Suspect]
     Indication: OSTEOPOROSIS
     Dosage: 20 UG, DAILY (1/D)
     Dates: start: 20090801
  2. VIVELLE [Concomitant]
  3. POTASSIUM [Concomitant]

REACTIONS (5)
  - FEELING ABNORMAL [None]
  - OTITIS MEDIA [None]
  - PAIN [None]
  - SINUSITIS [None]
  - TRANSIENT ISCHAEMIC ATTACK [None]
